FAERS Safety Report 23233574 (Version 5)
Quarter: 2025Q4

REPORT INFORMATION
  Report Type: Report from Study
  Country: MX (occurrence: MX)
  Receive Date: 20231128
  Receipt Date: 20251218
  Transmission Date: 20260118
  Serious: Yes (Other)
  Sender: AMGEN
  Company Number: MX-002147023-NVSC2023MX123053

PATIENT
  Age: 74 Year
  Sex: Female
  Weight: 60 kg

DRUGS (4)
  1. ERENUMAB [Suspect]
     Active Substance: ERENUMAB
     Indication: Migraine with aura
     Dosage: 1 DOSAGE FORM, QMO
     Route: 058
  2. ERENUMAB [Suspect]
     Active Substance: ERENUMAB
     Indication: Infarction
     Dosage: 70 MG
     Route: 065
  3. ERENUMAB [Suspect]
     Active Substance: ERENUMAB
     Indication: Status migrainosus
     Dosage: 1DF 70 MG
     Route: 058
     Dates: start: 20200409
  4. ERENUMAB [Suspect]
     Active Substance: ERENUMAB
     Indication: Migraine
     Dosage: 70 MG
     Route: 065

REACTIONS (6)
  - Hypoaesthesia [Recovered/Resolved]
  - Migraine [Not Recovered/Not Resolved]
  - Confusional state [Unknown]
  - Disorientation [Unknown]
  - Headache [Unknown]
  - Therapeutic product effect incomplete [Unknown]

NARRATIVE: CASE EVENT DATE: 20210901
